FAERS Safety Report 24910705 (Version 1)
Quarter: 2025Q1

REPORT INFORMATION
  Report Type: Spontaneous
  Country: BR (occurrence: BR)
  Receive Date: 20250131
  Receipt Date: 20250131
  Transmission Date: 20250408
  Serious: Yes (Other)
  Sender: PFIZER
  Company Number: BR-TAKEDA-2024TUS073586

PATIENT
  Age: 48 Year
  Sex: Female
  Weight: 78 kg

DRUGS (13)
  1. PANTOPRAZOLE [Suspect]
     Active Substance: PANTOPRAZOLE
     Indication: Oesophagitis
     Route: 065
  2. VONOPRAZAN FUMARATE [Suspect]
     Active Substance: VONOPRAZAN FUMARATE
     Indication: Oesophagitis
     Dosage: 40 MILLIGRAM, QD
     Route: 065
     Dates: start: 202311, end: 202411
  3. VONOPRAZAN FUMARATE [Suspect]
     Active Substance: VONOPRAZAN FUMARATE
     Indication: Palliative care
     Dosage: 20 MILLIGRAM, QD
     Route: 065
     Dates: start: 202411
  4. LEVOTHYROXINE [Concomitant]
     Active Substance: LEVOTHYROXINE
     Dosage: 75 MILLIGRAM, QD
     Route: 048
  5. DOMPERIDONE [Concomitant]
     Active Substance: DOMPERIDONE
     Dosage: 10 MILLIGRAM, TID
     Route: 048
  6. MYCOPHENOLATE MOFETIL [Concomitant]
     Active Substance: MYCOPHENOLATE MOFETIL
     Indication: Immunosuppression
     Dosage: UNK, BID
     Route: 048
  7. SERTRALINE [Concomitant]
     Active Substance: SERTRALINE HYDROCHLORIDE
     Dosage: 100 MILLIGRAM, QD
     Route: 048
  8. SILDENAFIL [Concomitant]
     Active Substance: SILDENAFIL
     Dosage: 25 MILLIGRAM, Q12H
     Route: 048
  9. VITAMIN D3 [Concomitant]
     Active Substance: CHOLECALCIFEROL
     Route: 048
  10. LUFTAGASTROPRO [Concomitant]
  11. DIMETHICONE [Concomitant]
     Active Substance: DIMETHICONE
  12. KETOCONAZOLE [Concomitant]
     Active Substance: KETOCONAZOLE
     Dosage: UNK, BID
     Route: 061
  13. ESOMEPRAZOLE [Concomitant]
     Active Substance: ESOMEPRAZOLE
     Indication: Oesophagitis
     Dosage: 20 MILLIGRAM, Q12H
     Route: 048
     Dates: start: 202410

REACTIONS (20)
  - Systemic scleroderma [Unknown]
  - Erosive oesophagitis [Unknown]
  - Chronic disease [Unknown]
  - Interstitial lung disease [Unknown]
  - Varicose vein [Unknown]
  - Pain [Unknown]
  - Raynaud^s phenomenon [Unknown]
  - Ulcer [Unknown]
  - Angioscopy [Unknown]
  - Skin hypertrophy [Unknown]
  - Condition aggravated [Unknown]
  - Malabsorption [Unknown]
  - Gastrointestinal microorganism overgrowth [Unknown]
  - Joint deformity [Unknown]
  - Gastrooesophageal reflux disease [Unknown]
  - Dyspnoea [Unknown]
  - Malaise [Unknown]
  - Arthralgia [Unknown]
  - Off label use [Unknown]
  - Incorrect product administration duration [Unknown]

NARRATIVE: CASE EVENT DATE: 20231101
